FAERS Safety Report 6087997-1 (Version None)
Quarter: 2009Q1

REPORT INFORMATION
  Report Type: 
  Country: None (occurrence: None)
  Receive Date: 20090219
  Receipt Date: 20090206
  Transmission Date: 20090719
  Serious: Yes (Other)
  Sender: FDA-Public Use
  Company Number: 2009AP000507

PATIENT
  Age: 49 Year
  Sex: Male

DRUGS (4)
  1. RISPERIDONE [Suspect]
     Indication: DEPRESSED MOOD
     Dosage: 2 MG; HS; 8MG; HS;
  2. TRAZODONE HYDROCHLORIDE [Suspect]
  3. LITHIUM CARBONATE CAP [Suspect]
     Indication: DEPRESSED MOOD
     Dosage: 900 MG, QD;
  4. QUETIAPINE FUMARATE [Suspect]

REACTIONS (2)
  - PRIAPISM [None]
  - TREATMENT NONCOMPLIANCE [None]
